FAERS Safety Report 12369513 (Version 1)
Quarter: 2016Q2

REPORT INFORMATION
  Report Type: Spontaneous
  Country: BG (occurrence: BG)
  Receive Date: 20160516
  Receipt Date: 20160516
  Transmission Date: 20160815
  Serious: Yes (Other)
  Sender: FDA-Public Use
  Company Number: PHHY2016BG063311

PATIENT
  Age: 44 Year
  Sex: Female

DRUGS (1)
  1. IMATINIB [Suspect]
     Active Substance: IMATINIB
     Indication: GASTROINTESTINAL STROMAL TUMOUR
     Dosage: 400 MG, QD
     Route: 048
     Dates: start: 20090616

REACTIONS (4)
  - Blood parathyroid hormone increased [Unknown]
  - Thyroid adenoma [Unknown]
  - Goitre [Unknown]
  - Thyroid mass [Unknown]

NARRATIVE: CASE EVENT DATE: 20160325
